FAERS Safety Report 10628140 (Version 2)
Quarter: 2014Q4

REPORT INFORMATION
  Report Type: Spontaneous
  Country: US (occurrence: US)
  Receive Date: 20141205
  Receipt Date: 20141205
  Transmission Date: 20150529
  Serious: No
  Sender: FDA-Public Use
  Company Number: US-BRISTOL-MYERS SQUIBB COMPANY-21395108

PATIENT
  Age: 74 Year
  Sex: Female
  Weight: 75.28 kg

DRUGS (2)
  1. COUMADIN [Suspect]
     Active Substance: WARFARIN SODIUM
     Indication: THROMBOSIS
     Dosage: 5MG, 2MG
     Dates: start: 201207
  2. COUMADIN [Suspect]
     Active Substance: WARFARIN SODIUM
     Indication: DEEP VEIN THROMBOSIS
     Dosage: 5MG, 2MG
     Dates: start: 201207

REACTIONS (2)
  - Prothrombin time abnormal [Unknown]
  - Wrong technique in drug usage process [Unknown]
